FAERS Safety Report 4981106-5 (Version None)
Quarter: 2006Q2

REPORT INFORMATION
  Report Type: 
  Country: None (occurrence: None)
  Receive Date: 20060424
  Receipt Date: 20060412
  Transmission Date: 20061013
  Serious: Yes (Other)
  Sender: FDA-Public Use
  Company Number: US-JNJFOC-20060403420

PATIENT
  Age: 27 Year
  Sex: Female
  Weight: 123.38 kg

DRUGS (1)
  1. ORTHO TRI-CYCLEN LO [Suspect]
     Route: 048

REACTIONS (3)
  - CHEST PAIN [None]
  - HEMIPLEGIA [None]
  - PROTHROMBIN TIME PROLONGED [None]
